FAERS Safety Report 8273619-8 (Version None)
Quarter: 2012Q2

REPORT INFORMATION
  Report Type: 
  Country: None (occurrence: None)
  Receive Date: 20120411
  Receipt Date: 20120202
  Transmission Date: 20120825
  Serious: No
  Sender: FDA-Public Use
  Company Number: US-TEVA-320686USA

PATIENT
  Sex: Female
  Weight: 59.02 kg

DRUGS (2)
  1. NUVIGIL [Suspect]
     Indication: FATIGUE
     Route: 048
     Dates: start: 20110701, end: 20111201
  2. NUVIGIL [Suspect]
     Route: 048

REACTIONS (2)
  - DRUG INEFFECTIVE [None]
  - SOMNOLENCE [None]
